FAERS Safety Report 22005863 (Version 1)
Quarter: 2023Q1

REPORT INFORMATION
  Report Type: Spontaneous
  Country: CN (occurrence: CN)
  Receive Date: 20230217
  Receipt Date: 20230217
  Transmission Date: 20230418
  Serious: Yes (Death)
  Sender: FDA-Public Use
  Company Number: CN-PFIZER INC-PV202300027054

PATIENT
  Age: 42 Year
  Sex: Male

DRUGS (6)
  1. FLUCONAZOLE [Suspect]
     Active Substance: FLUCONAZOLE
     Indication: Antifungal treatment
     Dosage: EVERY 8 H
     Route: 041
     Dates: start: 20220722
  2. MEROPENEM [Suspect]
     Active Substance: MEROPENEM
     Indication: Anti-infective therapy
     Dosage: EVERY 8 H
     Route: 041
     Dates: start: 20220722
  3. METRONIDAZOLE [Suspect]
     Active Substance: METRONIDAZOLE
     Indication: Amoeba test positive
     Dosage: EVERY 8 H
     Route: 041
     Dates: start: 20220722
  4. METRONIDAZOLE [Suspect]
     Active Substance: METRONIDAZOLE
     Dosage: EVERY 8 H
     Route: 041
  5. MANNITOL [Suspect]
     Active Substance: MANNITOL
     Indication: Dehydration
     Dosage: 100 ML
     Route: 041
     Dates: start: 20220722
  6. MANNITOL [Suspect]
     Active Substance: MANNITOL
     Indication: Intracranial pressure increased

REACTIONS (3)
  - Drug ineffective [Fatal]
  - Respiratory failure [Fatal]
  - Cardiac failure [Fatal]
